FAERS Safety Report 5034783-7 (Version None)
Quarter: 2006Q2

REPORT INFORMATION
  Report Type: 
  Country: None (occurrence: None)
  Receive Date: 20060509
  Receipt Date: 20051222
  Transmission Date: 20061013
  Serious: Yes (Hospitalization)
  Sender: FDA-Public Use
  Company Number: US200512003771

PATIENT
  Sex: Female

DRUGS (1)
  1. PROZAC [Suspect]
     Dosage: 20 MG,DAILY (1/D),ORAL
     Route: 048

REACTIONS (1)
  - ASTHMA EXACERBATION PROPHYLAXIS [None]
